FAERS Safety Report 7170520-8 (Version None)
Quarter: 2010Q4

REPORT INFORMATION
  Report Type: 
  Country: None (occurrence: None)
  Receive Date: 20101217
  Receipt Date: 20101207
  Transmission Date: 20110411
  Serious: Yes (Hospitalization, Other)
  Sender: FDA-Public Use
  Company Number: PHHY2010PT83112

PATIENT
  Sex: Male

DRUGS (3)
  1. RITALIN LA [Suspect]
     Dosage: 30 MG DAILY
     Route: 048
     Dates: start: 20070101
  2. RITALIN LA [Suspect]
     Dosage: 30 MG DAILY
     Route: 048
     Dates: start: 20100930
  3. MAGNESIUM ASPARTATE [Concomitant]
     Dosage: UNK
     Route: 048
     Dates: start: 20101003, end: 20101007

REACTIONS (3)
  - CHEST DISCOMFORT [None]
  - CHEST PAIN [None]
  - PALPITATIONS [None]
